FAERS Safety Report 7941051-X (Version None)
Quarter: 2011Q4

REPORT INFORMATION
  Report Type: 
  Country: None (occurrence: None)
  Receive Date: 20111128
  Receipt Date: 20111114
  Transmission Date: 20120403
  Serious: Yes (Hospitalization)
  Sender: FDA-Public Use
  Company Number: MX-SANOFI-AVENTIS-2011SA070466

PATIENT
  Age: 34 Year
  Sex: Female
  Weight: 64 kg

DRUGS (3)
  1. LANTUS [Suspect]
     Route: 058
     Dates: start: 20110214
  2. FOLIC ACID [Concomitant]
     Indication: VITAMIN SUPPLEMENTATION
     Route: 048
     Dates: start: 20110214
  3. LANTUS [Suspect]
     Indication: TYPE 1 DIABETES MELLITUS
     Route: 058
     Dates: start: 19910101, end: 20110214

REACTIONS (2)
  - PLACENTA PRAEVIA HAEMORRHAGE [None]
  - MATERNAL EXPOSURE DURING PREGNANCY [None]
